FAERS Safety Report 11376608 (Version 2)
Quarter: 2015Q3

REPORT INFORMATION
  Report Type: Report from Study
  Country: GB (occurrence: GB)
  Receive Date: 20150813
  Receipt Date: 20150824
  Transmission Date: 20151125
  Serious: Yes (Hospitalization, Other)
  Sender: FDA-Public Use
  Company Number: GB-ABBVIE-15K-167-1443159-00

PATIENT
  Sex: Male

DRUGS (1)
  1. HUMIRA [Suspect]
     Active Substance: ADALIMUMAB
     Indication: PRODUCT USED FOR UNKNOWN INDICATION
     Route: 065
     Dates: start: 20150317

REACTIONS (6)
  - Depression [Unknown]
  - Drug effect decreased [Unknown]
  - Malaise [Unknown]
  - Psoriasis [Unknown]
  - Nail discolouration [Unknown]
  - Skin ulcer [Unknown]

NARRATIVE: CASE EVENT DATE: 2015
